FAERS Safety Report 16121722 (Version 1)
Quarter: 2019Q1

REPORT INFORMATION
  Report Type: Spontaneous
  Country: CA (occurrence: CA)
  Receive Date: 20190327
  Receipt Date: 20190327
  Transmission Date: 20190418
  Serious: Yes (Other)
  Sender: FDA-Public Use
  Company Number: CA-AMGEN-CANSP2019043988

PATIENT
  Age: 67 Year
  Sex: Male

DRUGS (1)
  1. REPATHA [Suspect]
     Active Substance: EVOLOCUMAB
     Indication: HYPERCHOLESTEROLAEMIA
     Dosage: 140 MILLIGRAM PER MILLILITRE
     Route: 065

REACTIONS (4)
  - Injection site bruising [Unknown]
  - Injection site mass [Unknown]
  - Injection site pain [Unknown]
  - Cardiac operation [Unknown]

NARRATIVE: CASE EVENT DATE: 201710
